FAERS Safety Report 15073993 (Version 3)
Quarter: 2019Q2

REPORT INFORMATION
  Report Type: Spontaneous
  Country: AU (occurrence: AU)
  Receive Date: 20180627
  Receipt Date: 20190520
  Transmission Date: 20190711
  Serious: Yes (Other)
  Sender: FDA-Public Use
  Company Number: AU-009507513-1806AUS009965

PATIENT
  Age: 75 Year
  Sex: Male

DRUGS (2)
  1. KEYTRUDA [Suspect]
     Active Substance: PEMBROLIZUMAB
     Indication: METASTATIC MALIGNANT MELANOMA
  2. IBRUTINIB [Suspect]
     Active Substance: IBRUTINIB
     Indication: MANTLE CELL LYMPHOMA

REACTIONS (8)
  - Gastrooesophageal reflux disease [Unknown]
  - Cough [Unknown]
  - Therapeutic product effect incomplete [Unknown]
  - Decreased appetite [Unknown]
  - Chromaturia [Unknown]
  - Lethargy [Unknown]
  - Opportunistic infection [Unknown]
  - Nausea [Unknown]

NARRATIVE: CASE EVENT DATE: 20180606
